FAERS Safety Report 16183076 (Version 2)
Quarter: 2019Q2

REPORT INFORMATION
  Report Type: Spontaneous
  Country: US (occurrence: GB)
  Receive Date: 20190411
  Receipt Date: 20190429
  Transmission Date: 20190711
  Serious: Yes (Hospitalization, Other)
  Sender: FDA-Public Use
  Company Number: US-ACCORD-120054

PATIENT
  Age: 57 Year
  Sex: Male

DRUGS (4)
  1. CLOZAPINE. [Suspect]
     Active Substance: CLOZAPINE
     Indication: SCHIZOPHRENIA
     Dosage: TWICE PER DAY
  2. SERTRALINE [Concomitant]
     Active Substance: SERTRALINE HYDROCHLORIDE
     Indication: MOOD ALTERED
  3. LORAZEPAM. [Concomitant]
     Active Substance: LORAZEPAM
     Indication: ANXIETY
     Dosage: TWICE PER DAYS
  4. RISPERIDONE. [Interacting]
     Active Substance: RISPERIDONE
     Indication: SCHIZOPHRENIA
     Dosage: EVERY 2 WEEKS?1.5 MG AT BEDTIME
     Route: 030

REACTIONS (5)
  - Dysphemia [Recovered/Resolved]
  - Drop attacks [Unknown]
  - Drug interaction [Unknown]
  - Myoclonus [Recovered/Resolved]
  - Fall [Unknown]
